FAERS Safety Report 10564746 (Version 1)
Quarter: 2014Q4

REPORT INFORMATION
  Report Type: Report from Study
  Country: US (occurrence: US)
  Receive Date: 20141105
  Receipt Date: 20141105
  Transmission Date: 20150529
  Serious: Yes (Other)
  Sender: FDA-Public Use
  Company Number: US-ROCHE-1483627

PATIENT
  Sex: Female
  Weight: 72.64 kg

DRUGS (4)
  1. GENTAMICIN. [Concomitant]
     Active Substance: GENTAMICIN
     Dosage: FOUR TIMES A DAY FOR TWO DAYS. I STOPPED IN JUNE.
     Route: 065
  2. LUCENTIS [Suspect]
     Active Substance: RANIBIZUMAB
     Indication: AGE-RELATED MACULAR DEGENERATION
     Dosage: 4-6 WEEKS
     Route: 050
     Dates: start: 20140611
  3. ACETAMINOPHEN. [Concomitant]
     Active Substance: ACETAMINOPHEN
     Route: 065
  4. PROLENSA [Concomitant]
     Active Substance: BROMFENAC SODIUM
     Dosage: 0.07% PAIN EYE DROP. ONCE A DAY FOR TWO DAYS.
     Route: 065

REACTIONS (7)
  - Metamorphopsia [Unknown]
  - Eye irritation [Unknown]
  - Mental disorder [Unknown]
  - Eye pain [Unknown]
  - Abnormal sensation in eye [Unknown]
  - Photopsia [Unknown]
  - Discomfort [Unknown]
